FAERS Safety Report 14677785 (Version 1)
Quarter: 2018Q1

REPORT INFORMATION
  Report Type: Spontaneous
  Country: AT (occurrence: AT)
  Receive Date: 20180325
  Receipt Date: 20180325
  Transmission Date: 20180509
  Serious: Yes (Death, Life-Threatening, Other)
  Sender: FDA-Public Use
  Company Number: AT-MYLANLABS-2018M1017467

PATIENT

DRUGS (13)
  1. TACROLIMUS. [Suspect]
     Active Substance: TACROLIMUS
     Dosage: 10 MG, QD
     Route: 048
     Dates: start: 20160209
  2. TACROLIMUS. [Suspect]
     Active Substance: TACROLIMUS
     Dosage: 6 MG, QD
     Route: 048
     Dates: start: 20160310
  3. TACROLIMUS. [Suspect]
     Active Substance: TACROLIMUS
     Dosage: 6 MG, QD
     Route: 048
     Dates: start: 20161004
  4. TACROLIMUS. [Suspect]
     Active Substance: TACROLIMUS
     Dosage: 8 MG, QD
     Route: 048
     Dates: start: 20160229
  5. TACROLIMUS. [Suspect]
     Active Substance: TACROLIMUS
     Indication: PROPHYLAXIS AGAINST TRANSPLANT REJECTION
     Dosage: 12 MG, QD
     Route: 048
     Dates: start: 20160122
  6. TACROLIMUS. [Suspect]
     Active Substance: TACROLIMUS
     Dosage: 8 MG, QD
     Route: 048
     Dates: start: 20160404
  7. LEFLUNOMIDE. [Concomitant]
     Active Substance: LEFLUNOMIDE
     Indication: IMMUNOSUPPRESSION
     Dosage: UNK, QD
     Dates: start: 20160401
  8. TACROLIMUS. [Suspect]
     Active Substance: TACROLIMUS
     Dosage: 5 MG, QD
     Route: 048
     Dates: start: 20170105
  9. PREDNISOLONE. [Concomitant]
     Active Substance: PREDNISOLONE
     Indication: IMMUNOSUPPRESSION
     Dosage: UNK, QD
     Dates: start: 20160709
  10. TACROLIMUS. [Suspect]
     Active Substance: TACROLIMUS
     Dosage: 4 MG, QD
     Route: 048
     Dates: start: 20170209
  11. TACROLIMUS. [Suspect]
     Active Substance: TACROLIMUS
     Dosage: 14 MG, QD
     Route: 048
     Dates: start: 20160201
  12. TACROLIMUS. [Suspect]
     Active Substance: TACROLIMUS
     Dosage: 7 MG, QD
     Route: 048
     Dates: start: 20160826
  13. TACROLIMUS. [Suspect]
     Active Substance: TACROLIMUS
     Dosage: 12 MG, QD
     Route: 048
     Dates: start: 20160205

REACTIONS (2)
  - Human polyomavirus infection [Not Recovered/Not Resolved]
  - Neuroendocrine carcinoma [Fatal]

NARRATIVE: CASE EVENT DATE: 20170105
